FAERS Safety Report 4393701-5 (Version None)
Quarter: 2004Q3

REPORT INFORMATION
  Report Type: 
  Country: None (occurrence: None)
  Receive Date: 20040709
  Receipt Date: 20040329
  Transmission Date: 20050211
  Serious: Yes (Other)
  Sender: FDA-Public Use
  Company Number: US-GLAXOSMITHKLINE-A0504923A

PATIENT
  Age: 80 Year
  Sex: Female
  Weight: 59.1 kg

DRUGS (11)
  1. SEREVENT [Suspect]
     Indication: ASTHMA
     Dosage: 1PUFF TWICE PER DAY
     Route: 055
     Dates: start: 20040301
  2. IMITREX [Suspect]
     Indication: DRUG USE FOR UNKNOWN INDICATION
     Route: 045
  3. RHINOCORT [Concomitant]
     Indication: SINUSITIS
     Route: 045
     Dates: start: 20021101
  4. ATROVENT [Concomitant]
     Indication: ASTHMA
     Route: 055
     Dates: start: 19920101
  5. HYDROCHLOROTHIAZIDE [Concomitant]
     Indication: HYPERTENSION
     Route: 048
     Dates: start: 19950101
  6. VASOTEC [Concomitant]
     Indication: HYPERTENSION
     Route: 048
     Dates: start: 20000101
  7. VIVELLE [Concomitant]
     Indication: OSTEOPOROSIS
     Dates: start: 20040301
  8. DIGOXIN [Concomitant]
     Route: 048
     Dates: start: 19940101
  9. IMITREX [Concomitant]
     Route: 048
  10. ATARAX [Concomitant]
     Route: 048
  11. DEXAMETHASONE [Concomitant]

REACTIONS (8)
  - ATRIAL FIBRILLATION [None]
  - BRONCHOSPASM [None]
  - CHEST DISCOMFORT [None]
  - COUGH [None]
  - DYSGEUSIA [None]
  - HYPERSENSITIVITY [None]
  - NASAL DISCOMFORT [None]
  - THROAT IRRITATION [None]
